FAERS Safety Report 13631181 (Version 1)
Quarter: 2017Q2

REPORT INFORMATION
  Report Type: Report from Study
  Country: US (occurrence: US)
  Receive Date: 20170608
  Receipt Date: 20170608
  Transmission Date: 20170830
  Serious: Yes (Death, Life-Threatening, Other)
  Sender: FDA-Public Use
  Company Number: US-PFIZER INC-2017245602

PATIENT
  Age: 13 Day

DRUGS (4)
  1. CALCIUM [Concomitant]
     Active Substance: CALCIUM
     Dosage: UNK
  2. BACTERIOSTATIC SODIUM CHLORIDE [Suspect]
     Active Substance: SODIUM CHLORIDE
     Dosage: 99 TO 234 MG PER KILOGRAM OF BODY WEIGHT
  3. SODIUM BICARBONATE. [Concomitant]
     Active Substance: SODIUM BICARBONATE
     Dosage: UNK
  4. WATER BACTERIOSTATIC [Suspect]
     Active Substance: WATER
     Dosage: UNK

REACTIONS (10)
  - Bone marrow failure [Unknown]
  - Circulatory collapse [Unknown]
  - Death [Fatal]
  - Neurotoxicity [Unknown]
  - Metabolic acidosis [Unknown]
  - Gasping syndrome [Unknown]
  - Contraindicated product administered [Fatal]
  - Hyperbilirubinaemia [Unknown]
  - Hypotension [Unknown]
  - Renal failure [Unknown]
